FAERS Safety Report 7023453-1 (Version None)
Quarter: 2010Q3

REPORT INFORMATION
  Report Type: 
  Country: None (occurrence: None)
  Receive Date: 20100929
  Receipt Date: 20090310
  Transmission Date: 20110219
  Serious: Yes (Other)
  Sender: FDA-Public Use
  Company Number: MC200900447

PATIENT
  Age: 67 Year
  Sex: Male

DRUGS (14)
  1. CLEVIPREX [Suspect]
     Indication: HYPERTENSION
     Dosage: 2 MG/HR AND DOUBLE THE CONCENTRATION TO 4 MG IN 90 SECONDS
     Dates: start: 20090227, end: 20090301
  2. LISINOPRIL (LISINOPRIL DIHYDRATE) [Concomitant]
  3. FELODIPINE [Concomitant]
  4. ATENOLOL [Concomitant]
  5. FLOMAX (MORNIFLUMATE) [Concomitant]
  6. OMEPRAZOLE [Concomitant]
  7. SIMVASTATIN [Concomitant]
  8. ZANTAC [Concomitant]
  9. ZESTRIL [Concomitant]
  10. CARDIZEM [Concomitant]
  11. CATAPRES [Concomitant]
  12. VASOTEC [Concomitant]
  13. DILAUDID [Concomitant]
  14. LABETALOL HCL (LABETALOL HCL) INTRAVENOUS INFUSION [Concomitant]

REACTIONS (3)
  - HAEMOGLOBIN DECREASED [None]
  - LOWER GASTROINTESTINAL HAEMORRHAGE [None]
  - REBOUND TACHYCARDIA [None]
